FAERS Safety Report 14799923 (Version 1)
Quarter: 2018Q2

REPORT INFORMATION
  Report Type: Spontaneous
  Country: PH (occurrence: PH)
  Receive Date: 20180416
  Receipt Date: 20180416
  Transmission Date: 20180711
  Serious: Yes (Hospitalization, Disabling, Other)
  Sender: FDA-Public Use
  Company Number: None

PATIENT
  Age: 61 Year
  Sex: Male
  Weight: 94.5 kg

DRUGS (2)
  1. ZOLOFT [Suspect]
     Active Substance: SERTRALINE HYDROCHLORIDE
     Indication: ANXIETY
     Route: 048
     Dates: start: 20010102, end: 20050915
  2. ZOLOFT [Suspect]
     Active Substance: SERTRALINE HYDROCHLORIDE
     Indication: DEPRESSION
     Route: 048
     Dates: start: 20010102, end: 20050915

REACTIONS (8)
  - Tremor [None]
  - Inability to afford medication [None]
  - Loss of employment [None]
  - Anxiety [None]
  - Crying [None]
  - Product substitution issue [None]
  - Quality of life decreased [None]
  - Sedation [None]

NARRATIVE: CASE EVENT DATE: 20050901
